FAERS Safety Report 4473840-0 (Version None)
Quarter: 2004Q4

REPORT INFORMATION
  Report Type: 
  Country: None (occurrence: None)
  Receive Date: 20041008
  Receipt Date: 20041008
  Transmission Date: 20050328
  Serious: Yes (Life-Threatening, Hospitalization)
  Sender: FDA-Public Use
  Company Number: None

PATIENT
  Age: 69 Year
  Sex: Male
  Weight: 86.1834 kg

DRUGS (1)
  1. VIOXX [Suspect]
     Dosage: (1) TABLET BY MOUTH DAILY
     Route: 048
     Dates: start: 20020301, end: 20040901

REACTIONS (1)
  - MYOCARDIAL INFARCTION [None]
